FAERS Safety Report 8276659-8 (Version None)
Quarter: 2012Q2

REPORT INFORMATION
  Report Type: 
  Country: None (occurrence: None)
  Receive Date: 20120406
  Receipt Date: 20120402
  Transmission Date: 20120825
  Serious: Yes (Hospitalization, Congenital Anomaly)
  Sender: FDA-Public Use
  Company Number: 2012SP015553

PATIENT
  Age: 1 Day
  Sex: Female
  Weight: 1.68 kg

DRUGS (3)
  1. CHORIONIC GONADOTROPIN [Suspect]
     Indication: ASSISTED FERTILISATION
  2. CHORIONIC GONADOTROPIN [Suspect]
     Indication: ASSISTED FERTILISATION
  3. HUMAN MENOPAUSAL GONADOTROPHIN (GONADOTROPINS) [Suspect]
     Indication: ASSISTED FERTILISATION

REACTIONS (7)
  - NEONATAL RESPIRATORY ARREST [None]
  - MATERNAL DRUGS AFFECTING FOETUS [None]
  - CAESAREAN SECTION [None]
  - LOW BIRTH WEIGHT BABY [None]
  - PRADER-WILLI SYNDROME [None]
  - APGAR SCORE LOW [None]
  - PREMATURE BABY [None]
